FAERS Safety Report 24051444 (Version 1)
Quarter: 2024Q3

REPORT INFORMATION
  Report Type: Spontaneous
  Country: US (occurrence: US)
  Receive Date: 20240704
  Receipt Date: 20240704
  Transmission Date: 20241016
  Serious: Yes (Life-Threatening, Hospitalization, Other)
  Sender: PFIZER
  Company Number: US-PFIZER INC-PV202400086431

PATIENT
  Age: 25 Year
  Sex: Male

DRUGS (3)
  1. VINCRISTINE SULFATE [Suspect]
     Active Substance: VINCRISTINE SULFATE
     Indication: Alveolar rhabdomyosarcoma
     Dosage: UNK, CYCLIC, 3 CYCLES
  2. DACTINOMYCIN [Suspect]
     Active Substance: DACTINOMYCIN
     Indication: Alveolar rhabdomyosarcoma
     Dosage: UNK, CYCLIC, 3 CYCLES
  3. CYCLOPHOSPHAMIDE [Suspect]
     Active Substance: CYCLOPHOSPHAMIDE
     Indication: Alveolar rhabdomyosarcoma
     Dosage: UNK, CYCLIC, 3 CYCLES

REACTIONS (2)
  - Hyperfibrinolysis [Recovered/Resolved]
  - Thrombocytopenia [Recovered/Resolved]
